FAERS Safety Report 4606080-2 (Version None)
Quarter: 2005Q1

REPORT INFORMATION
  Report Type: 
  Country: None (occurrence: None)
  Receive Date: 20050309
  Receipt Date: 20050216
  Transmission Date: 20050727
  Serious: Yes (Hospitalization, Other)
  Sender: FDA-Public Use
  Company Number: US_0411107958

PATIENT
  Age: 38 Year
  Sex: Female
  Weight: 100 kg

DRUGS (28)
  1. ZYPREXA [Suspect]
     Indication: BIPOLAR DISORDER
     Dosage: 30 MG/1 DAY
     Dates: start: 20020419, end: 20021001
  2. HUMULIN N [Suspect]
     Indication: DIABETES MELLITUS NON-INSULIN-DEPENDENT
  3. HUMULIN R [Suspect]
     Indication: DIABETES MELLITUS NON-INSULIN-DEPENDENT
  4. ABILIFY [Concomitant]
  5. QUETIAPINE FUMARATE [Concomitant]
  6. RISPERDAL [Concomitant]
  7. HALDOL (HALOPERIDOL DECANOATE) [Concomitant]
  8. DEPAKOTE [Concomitant]
  9. LITHIUM [Concomitant]
  10. BUPROPION HCL [Concomitant]
  11. NOVOLIN NPH (INSULIN HUMAN INJECTION, ISOPHANE) [Concomitant]
  12. NOVOLIN R [Concomitant]
  13. GLYBURIDE AND METFORMIN HCL [Concomitant]
  14. NEURONTIN (GABAPENTIN PFIZER) [Concomitant]
  15. DESYREL [Concomitant]
  16. TEMAZEPAM [Concomitant]
  17. LORAZEPAM [Concomitant]
  18. ACETAMINOPHEN [Concomitant]
  19. FEMHRT [Concomitant]
  20. CLARITIN [Concomitant]
  21. LIPITOR [Concomitant]
  22. ACCUPRIL [Concomitant]
  23. GLUCOPHAGE [Concomitant]
  24. NICOTROL (NICOTINE) [Concomitant]
  25. ALLEGRA [Concomitant]
  26. RISPERDAL [Concomitant]
  27. AVAPRO [Concomitant]
  28. AVANDAMET [Concomitant]

REACTIONS (30)
  - AFFECT LABILITY [None]
  - AGITATION [None]
  - ASTHMA [None]
  - BLOOD TRIGLYCERIDES INCREASED [None]
  - CELLULITIS [None]
  - CHILLS [None]
  - DECREASED APPETITE [None]
  - DEPRESSION [None]
  - DIABETES MELLITUS INADEQUATE CONTROL [None]
  - DIABETES MELLITUS NON-INSULIN-DEPENDENT [None]
  - GASTROOESOPHAGEAL REFLUX DISEASE [None]
  - HEPATIC ENZYME INCREASED [None]
  - HEPATIC STEATOSIS [None]
  - IRRITABILITY [None]
  - JOINT SWELLING [None]
  - LETHARGY [None]
  - LIVER DISORDER [None]
  - MIGRAINE [None]
  - MYOCARDIAL INFARCTION [None]
  - NAUSEA [None]
  - OEDEMA PERIPHERAL [None]
  - SOCIAL AVOIDANT BEHAVIOUR [None]
  - SWELLING [None]
  - TREMOR [None]
  - URINARY TRACT INFECTION [None]
  - VENTRICULAR HYPERTROPHY [None]
  - VISION BLURRED [None]
  - VOMITING [None]
  - WEIGHT DECREASED [None]
  - WEIGHT INCREASED [None]
